FAERS Safety Report 15261091 (Version 2)
Quarter: 2019Q2

REPORT INFORMATION
  Report Type: Spontaneous
  Country: CA (occurrence: CA)
  Receive Date: 20180809
  Receipt Date: 20190619
  Transmission Date: 20190711
  Serious: Yes (Other)
  Sender: FDA-Public Use
  Company Number: CA-TEVA-2018-CA-936185

PATIENT
  Age: 25 Year
  Sex: Male
  Weight: 78 kg

DRUGS (25)
  1. AZITHROMYCIN ANHYDROUS. [Concomitant]
     Active Substance: AZITHROMYCIN ANHYDROUS
  2. SYNTHROID [Concomitant]
     Active Substance: LEVOTHYROXINE SODIUM
  3. ZYLOPRIM [Concomitant]
     Active Substance: ALLOPURINOL
  4. ACZONE [Concomitant]
     Active Substance: DAPSONE
  5. FLOVENT HFA [Concomitant]
     Active Substance: FLUTICASONE PROPIONATE
  6. TEARS PLUS [Concomitant]
     Route: 047
  7. CETAPHIL DAILY FACIAL MOISTURIZER (SPF 50) [Concomitant]
  8. OMEGA 3-6-9 [Concomitant]
     Active Substance: FISH OIL
  9. POLYVINYL ALCOHOL/POVIDONE [Concomitant]
  10. PANTOPRAZOLE [Suspect]
     Active Substance: PANTOPRAZOLE
     Indication: GASTROOESOPHAGEAL REFLUX DISEASE
     Route: 048
  11. CALCIUM [Concomitant]
     Active Substance: CALCIUM
  12. GENTEAL MILD [Concomitant]
     Active Substance: HYPROMELLOSE 2910 (4000 MPA.S)
  13. TECTA [Concomitant]
     Active Substance: PANTOPRAZOLE MAGNESIUM
  14. TOVIAZ [Concomitant]
     Active Substance: FESOTERODINE FUMARATE
  15. ZINC GLUCONATE [Concomitant]
     Active Substance: ZINC GLUCONATE
  16. BENZACLIN [Concomitant]
     Active Substance: BENZOYL PEROXIDE\CLINDAMYCIN PHOSPHATE
  17. CIPRALEX -10MG [Concomitant]
     Indication: HYPERTONIC BLADDER
  18. EPIVAL [Concomitant]
     Active Substance: DIVALPROEX SODIUM
  19. NASOCORT [Concomitant]
     Active Substance: BUDESONIDE
  20. OTRIVIN [Concomitant]
     Active Substance: XYLOMETAZOLINE
  21. TYLENOL [Concomitant]
     Active Substance: ACETAMINOPHEN
  22. TYLENOL #1 (CANADA) [Concomitant]
     Active Substance: ACETAMINOPHEN\CAFFEINE\CODEINE PHOSPHATE
  23. DICLOFENAC [Concomitant]
     Active Substance: DICLOFENAC
  24. SEROQUEL [Concomitant]
     Active Substance: QUETIAPINE FUMARATE
  25. VITAMIN D [Concomitant]
     Active Substance: VITAMIN D NOS

REACTIONS (3)
  - General physical health deterioration [Recovered/Resolved]
  - Product substitution issue [Recovered/Resolved]
  - Mental impairment [Recovered/Resolved]
